FAERS Safety Report 5596381-6 (Version None)
Quarter: 2008Q1

REPORT INFORMATION
  Report Type: 
  Country: None (occurrence: None)
  Receive Date: 20080118
  Receipt Date: 20080109
  Transmission Date: 20080703
  Serious: Yes (Hospitalization, Other)
  Sender: FDA-Public Use
  Company Number: US-PFIZER INC-2007088351

PATIENT
  Sex: Male
  Weight: 57.272 kg

DRUGS (8)
  1. CEREBYX [Suspect]
     Indication: GRAND MAL CONVULSION
     Dosage: DAILY DOSE:900MG
     Route: 042
     Dates: start: 20071017, end: 20071017
  2. DILTIAZEM HCL [Concomitant]
  3. ASPIRIN [Concomitant]
  4. NORVASC [Concomitant]
  5. CARDIZEM [Concomitant]
  6. PLAVIX [Concomitant]
  7. HYDROCHLOROTHIAZIDE [Concomitant]
  8. UNIVASC [Concomitant]

REACTIONS (3)
  - AGGRESSION [None]
  - AGITATION [None]
  - ENCEPHALITIS [None]
